FAERS Safety Report 14143318 (Version 1)
Quarter: 2017Q4

REPORT INFORMATION
  Report Type: Spontaneous
  Country: US (occurrence: US)
  Receive Date: 20171030
  Receipt Date: 20171030
  Transmission Date: 20180321
  Serious: No
  Sender: FDA-Public Use
  Company Number: US-SUNOVION-2017SUN004464

PATIENT
  Sex: Female

DRUGS (1)
  1. LATUDA [Suspect]
     Active Substance: LURASIDONE HYDROCHLORIDE
     Dosage: UNK, UNK
     Route: 048
     Dates: start: 201710

REACTIONS (3)
  - Migraine [Unknown]
  - Allergic reaction to excipient [Unknown]
  - Headache [Unknown]

NARRATIVE: CASE EVENT DATE: 201710
